FAERS Safety Report 5821020-6 (Version None)
Quarter: 2008Q3

REPORT INFORMATION
  Report Type: 
  Country: None (occurrence: None)
  Receive Date: 20080721
  Receipt Date: 20080707
  Transmission Date: 20090109
  Serious: Yes (Congenital Anomaly, Other)
  Sender: FDA-Public Use
  Company Number: SPI200800339

PATIENT

DRUGS (2)
  1. AMITIZA [Suspect]
     Dosage: 24 MCG, TRANSPLACENTAL
     Route: 064
     Dates: start: 20080101, end: 20080101
  2. LEXAPRO [Concomitant]

REACTIONS (3)
  - CONGENITAL ANOMALY [None]
  - DRUG EXPOSURE DURING PREGNANCY [None]
  - MATERNAL DRUGS AFFECTING FOETUS [None]
